FAERS Safety Report 21789929 (Version 2)
Quarter: 2023Q2

REPORT INFORMATION
  Report Type: Report from Study
  Country: US (occurrence: US)
  Receive Date: 20221228
  Receipt Date: 20230410
  Transmission Date: 20230721
  Serious: No
  Sender: FDA-Public Use
  Company Number: US-ABBVIE-4194549

PATIENT
  Sex: Male

DRUGS (2)
  1. HUMIRA [Suspect]
     Active Substance: ADALIMUMAB
     Indication: Crohn^s disease
     Dosage: CITRATE FREE
     Route: 058
  2. HUMIRA [Suspect]
     Active Substance: ADALIMUMAB
     Dosage: CITRATE FREE
     Route: 058

REACTIONS (4)
  - Laboratory test abnormal [Unknown]
  - Ulcer [Not Recovered/Not Resolved]
  - Crohn^s disease [Not Recovered/Not Resolved]
  - Drug ineffective [Unknown]
